FAERS Safety Report 24684143 (Version 1)
Quarter: 2024Q4

REPORT INFORMATION
  Report Type: Spontaneous
  Country: CN (occurrence: CN)
  Receive Date: 20241202
  Receipt Date: 20241202
  Transmission Date: 20250115
  Serious: Yes (Hospitalization, Other)
  Sender: SANOFI AVENTIS
  Company Number: CN-SA-2024SA351147

PATIENT
  Age: 71 Year
  Sex: Male
  Weight: 77 kg

DRUGS (2)
  1. CLOPIDOGREL BISULFATE [Suspect]
     Active Substance: CLOPIDOGREL BISULFATE
     Indication: Angina pectoris
     Dosage: 150 MG, QD
     Route: 048
     Dates: start: 20241116, end: 20241120
  2. NICOTINAMIDE [Suspect]
     Active Substance: NIACINAMIDE
     Indication: Angina pectoris
     Dosage: 300 MG, QD
     Route: 041
     Dates: start: 20241116, end: 20241117

REACTIONS (1)
  - Liver injury [Recovering/Resolving]

NARRATIVE: CASE EVENT DATE: 20241120
